FAERS Safety Report 7166509-5 (Version None)
Quarter: 2010Q4

REPORT INFORMATION
  Report Type: 
  Country: None (occurrence: None)
  Receive Date: 20101203
  Receipt Date: 20101119
  Transmission Date: 20110411
  Serious: Yes (Hospitalization)
  Sender: FDA-Public Use
  Company Number: ISPH-2010-0552

PATIENT
  Sex: Female

DRUGS (1)
  1. AZASITE [Suspect]
     Indication: EYE PAIN
     Dosage: GTT, OPHTHALMIC
     Route: 047

REACTIONS (3)
  - CARDIAC DISORDER [None]
  - PAIN [None]
  - TREATMENT NONCOMPLIANCE [None]
